FAERS Safety Report 4425698-3 (Version None)
Quarter: 2004Q3

REPORT INFORMATION
  Report Type: 
  Country: None (occurrence: None)
  Receive Date: 20040716
  Receipt Date: 20040607
  Transmission Date: 20050211
  Serious: Yes (Hospitalization)
  Sender: FDA-Public Use
  Company Number: 206699

PATIENT
  Age: 81 Year
  Sex: Female
  Weight: 74 kg

DRUGS (4)
  1. TNKASE [Suspect]
     Indication: ACUTE MYOCARDIAL INFARCTION
     Dosage: SINGLE, INTRAVENOUS
     Route: 042
     Dates: start: 20040507
  2. DOPAMINE HCL [Concomitant]
  3. HEPARIN [Concomitant]
  4. MORPHINE [Concomitant]

REACTIONS (1)
  - INJECTION SITE HAEMORRHAGE [None]
